FAERS Safety Report 5736920-5 (Version None)
Quarter: 2008Q2

REPORT INFORMATION
  Report Type: 
  Country: None (occurrence: None)
  Receive Date: 20080509
  Receipt Date: 20080425
  Transmission Date: 20081010
  Serious: Yes (Hospitalization)
  Sender: FDA-Public Use
  Company Number: 2008000811

PATIENT
  Age: 41 Year
  Sex: Male

DRUGS (1)
  1. ERLOTINIB (ERLOTINIB HCL) (TABLET) (ERLOTINIB HCL) [Suspect]
     Indication: NON-SMALL CELL LUNG CANCER
     Dosage: (150 MG, QD) , ORAL
     Route: 048
     Dates: start: 20061120, end: 20080224

REACTIONS (5)
  - DEHYDRATION [None]
  - PRODUCTIVE COUGH [None]
  - PULMONARY EMBOLISM [None]
  - TACHYCARDIA [None]
  - TACHYPNOEA [None]
